FAERS Safety Report 25068798 (Version 3)
Quarter: 2025Q3

REPORT INFORMATION
  Report Type: Spontaneous
  Country: US (occurrence: US)
  Receive Date: 20250312
  Receipt Date: 20250918
  Transmission Date: 20251021
  Serious: No
  Sender: SANOFI AVENTIS
  Company Number: US-SA-2025SA070964

PATIENT
  Age: 74 Year
  Sex: Male

DRUGS (1)
  1. DUPIXENT [Suspect]
     Active Substance: DUPILUMAB
     Indication: Dermatitis atopic
     Dosage: 300 MG, QOW
     Route: 058

REACTIONS (6)
  - Injection site discomfort [Unknown]
  - Diarrhoea [Unknown]
  - Ocular hyperaemia [Unknown]
  - Pruritus [Unknown]
  - Therapeutic response decreased [Unknown]
  - Product preparation error [Unknown]

NARRATIVE: CASE EVENT DATE: 20250408
